FAERS Safety Report 20555079 (Version 1)
Quarter: 2022Q1

REPORT INFORMATION
  Report Type: Spontaneous
  Country: US (occurrence: US)
  Receive Date: 20220304
  Receipt Date: 20220304
  Transmission Date: 20220423
  Serious: Yes (Other)
  Sender: FDA-Public Use
  Company Number: US-PURDUE-USA-2020-0284803

PATIENT
  Sex: Female

DRUGS (13)
  1. OXYCONTIN [Suspect]
     Active Substance: OXYCODONE HYDROCHLORIDE
     Indication: Injury
     Dosage: UNKNOWN
     Route: 048
     Dates: start: 1999
  2. OXYCODONE HYDROCHLORIDE [Suspect]
     Active Substance: OXYCODONE HYDROCHLORIDE
     Indication: Injury
     Dosage: UNKNOWN
     Route: 048
  3. ACETAMINOPHEN\OXYCODONE HYDROCHLORIDE [Suspect]
     Active Substance: ACETAMINOPHEN\OXYCODONE HYDROCHLORIDE
     Indication: Injury
     Dosage: UNKNOWN
     Route: 048
  4. OXYCODONE HYDROCHLORIDE [Suspect]
     Active Substance: OXYCODONE HYDROCHLORIDE
     Indication: Injury
     Dosage: UNKNOWN
     Route: 065
  5. DILAUDID [Suspect]
     Active Substance: HYDROMORPHONE HYDROCHLORIDE
     Indication: Injury
     Dosage: UNKNOWN
     Route: 048
  6. BUTRANS [Suspect]
     Active Substance: BUPRENORPHINE
     Indication: Injury
     Dosage: UNKNOWN
     Route: 062
  7. BUPRENORPHINE [Suspect]
     Active Substance: BUPRENORPHINE
     Indication: Injury
     Dosage: UNKNOWN
     Route: 062
  8. HYDROMORPHONE [Suspect]
     Active Substance: HYDROMORPHONE
     Indication: Injury
     Dosage: UNKNOWN
     Route: 048
  9. MORPHINE SULFATE [Suspect]
     Active Substance: MORPHINE SULFATE
     Indication: Injury
     Dosage: UNKNOWN
     Route: 048
  10. MS CONTIN [Suspect]
     Active Substance: MORPHINE SULFATE
     Indication: Injury
     Dosage: UNKNOWN
     Route: 048
  11. RYZOLT [Suspect]
     Active Substance: TRAMADOL HYDROCHLORIDE
     Indication: Injury
     Dosage: UNKNOWN
     Route: 048
  12. OXYCODONE HYDROCHLORIDE [Suspect]
     Active Substance: OXYCODONE HYDROCHLORIDE
     Indication: Injury
     Dosage: UNKNOWN
     Route: 065
  13. BUPRENORPHINE [Suspect]
     Active Substance: BUPRENORPHINE
     Indication: Injury
     Dosage: UNKNOWN
     Route: 062

REACTIONS (2)
  - Overdose [Unknown]
  - Drug dependence [Unknown]

NARRATIVE: CASE EVENT DATE: 20140101
